FAERS Safety Report 9054607 (Version 5)
Quarter: 2013Q2

REPORT INFORMATION
  Report Type: Report from Study
  Country: US (occurrence: US)
  Receive Date: 20130208
  Receipt Date: 20130503
  Transmission Date: 20140414
  Serious: Yes (Hospitalization)
  Sender: FDA-Public Use
  Company Number: US-AMGEN-USACT2013005869

PATIENT
  Age: 63 Year
  Sex: Female
  Weight: 95.91 kg

DRUGS (26)
  1. TRAMADOL [Concomitant]
     Dosage: 50 MG, UNK
     Route: 048
     Dates: start: 20120727
  2. POLYETHYLENE GLYCOL [Concomitant]
     Dosage: 17 G, UNK
     Route: 048
     Dates: start: 20120713
  3. SENNA [Concomitant]
     Dosage: 8.6 MG, UNK
     Route: 048
     Dates: start: 20120713
  4. LACTULOSE [Concomitant]
     Dosage: 15 ML, UNK
     Route: 048
     Dates: start: 20120713
  5. CELEBREX [Concomitant]
     Dosage: 200 MG, UNK
     Route: 048
     Dates: start: 20120713
  6. LIDOCAINE [Concomitant]
     Dosage: 1 ML, UNK
     Route: 023
     Dates: start: 20120305
  7. CINNAMON [Concomitant]
     Dosage: 500 MG, UNK
     Route: 048
     Dates: start: 20120113
  8. DOCUSATE SODIUM [Concomitant]
     Dosage: 100 MG, UNK
     Route: 048
     Dates: start: 20120306
  9. CYMBALTA [Concomitant]
     Dosage: 60 MG, UNK
     Route: 048
     Dates: start: 20120113
  10. NEXIUM [Concomitant]
     Dosage: 40 MG, UNK
     Route: 048
     Dates: start: 20120522
  11. LASIX [Concomitant]
     Dosage: 40 MG, UNK
     Route: 048
     Dates: start: 20120113
  12. SYNTHROID [Concomitant]
     Dosage: 75 MUG, UNK
     Route: 048
     Dates: start: 20120113
  13. HEPARIN [Concomitant]
     Route: 042
  14. DENOSUMAB [Suspect]
     Indication: BREAST CANCER
     Dosage: UNK
     Dates: start: 20120518
  15. NEULASTA [Concomitant]
     Dosage: 6 MG, UNK
     Route: 058
     Dates: start: 20120404
  16. CALCIUM [Concomitant]
     Dosage: 600 MG, UNK
     Route: 048
     Dates: start: 20120113
  17. VITAMIN D [Concomitant]
     Dosage: 1400 IU, UNK
     Route: 048
     Dates: start: 20120113
  18. ATIVAN [Concomitant]
     Dosage: 1 MG, UNK
     Route: 048
     Dates: start: 20120601
  19. EMEND [Concomitant]
     Dosage: UNK
     Route: 048
     Dates: start: 20120518
  20. PROMETHAZINE HCL [Concomitant]
     Dosage: 25 MG, UNK
     Route: 048
     Dates: start: 20120601
  21. INDERAL LA [Concomitant]
     Dosage: 60 MG, UNK
     Route: 048
     Dates: start: 20120113
  22. DETROL LA [Concomitant]
     Dosage: 4 MG, UNK
     Route: 048
     Dates: start: 20120113
  23. DEXAMETHASONE [Concomitant]
     Dosage: UNK
     Dates: start: 20120330
  24. SALINEX NASAL [Concomitant]
     Dosage: UNK
     Route: 050
     Dates: start: 20120305
  25. DORYX [Concomitant]
     Dosage: 150 MG, UNK
     Route: 048
     Dates: start: 20120629
  26. LIPITOR [Concomitant]
     Dosage: 10 MG, UNK
     Route: 048
     Dates: start: 20120119

REACTIONS (1)
  - Cholecystitis acute [Recovered/Resolved]
